FAERS Safety Report 9989421 (Version 3)
Quarter: 2014Q3

REPORT INFORMATION
  Report Type: Report from Study
  Country: BE (occurrence: BE)
  Receive Date: 20140310
  Receipt Date: 20140925
  Transmission Date: 20150326
  Serious: Yes (Hospitalization)
  Sender: FDA-Public Use
  Company Number: BE-SA-2014SA025657

PATIENT
  Age: 59 Year
  Sex: Male
  Weight: 72 kg

DRUGS (10)
  1. PREDNISONE. [Suspect]
     Active Substance: PREDNISONE
     Indication: PROSTATE CANCER METASTATIC
     Route: 065
  2. CALCIUM [Concomitant]
     Active Substance: CALCIUM
  3. EMCORETIC [Concomitant]
     Active Substance: BISOPROLOL FUMARATE\HYDROCHLOROTHIAZIDE
  4. OMNIBIONTA [Concomitant]
     Active Substance: VITAMINS
  5. DAFALGAN [Concomitant]
     Active Substance: ACETAMINOPHEN
  6. CABAZITAXEL [Suspect]
     Active Substance: CABAZITAXEL
     Indication: PROSTATE CANCER METASTATIC
     Route: 065
     Dates: start: 20140213, end: 20140213
  7. MEDROL [Concomitant]
     Active Substance: METHYLPREDNISOLONE
  8. PANTOMED [Concomitant]
     Active Substance: DEXPANTHENOL
  9. CABAZITAXEL [Suspect]
     Active Substance: CABAZITAXEL
     Indication: PROSTATE CANCER METASTATIC
     Route: 065
     Dates: start: 20131211
  10. VOLTAREN [Concomitant]
     Active Substance: DICLOFENAC SODIUM

REACTIONS (2)
  - Diarrhoea [Not Recovered/Not Resolved]
  - Fall [Recovered/Resolved]

NARRATIVE: CASE EVENT DATE: 20140225
